FAERS Safety Report 17206951 (Version 1)
Quarter: 2019Q4

REPORT INFORMATION
  Report Type: Spontaneous
  Country: PL (occurrence: PL)
  Receive Date: 20191227
  Receipt Date: 20191227
  Transmission Date: 20200122
  Serious: Yes (Other)
  Sender: FDA-Public Use
  Company Number: PL-AUROBINDO-AUR-APL-2019-108275

PATIENT
  Age: 28 Year
  Sex: Male

DRUGS (10)
  1. PROPRANOLOL [Suspect]
     Active Substance: PROPRANOLOL HYDROCHLORIDE
     Indication: ANXIETY
     Dosage: 60 MILLIGRAM, ONCE A DAY (IN THREE DIVIDED DOSE)
     Route: 065
  2. HYDROXYZINE [Suspect]
     Active Substance: HYDROXYZINE HYDROCHLORIDE
     Indication: INSOMNIA
  3. TRAZODONE [Suspect]
     Active Substance: TRAZODONE HYDROCHLORIDE
     Indication: EJACULATION DELAYED
  4. TRAZODONE [Suspect]
     Active Substance: TRAZODONE HYDROCHLORIDE
     Indication: INSOMNIA
     Dosage: 150 MILLIGRAM, ONCE A DAY (IN THE EVENING)
     Route: 065
  5. ESCITALOPRAM [Suspect]
     Active Substance: ESCITALOPRAM OXALATE
     Dosage: UNK
     Route: 065
  6. PREGABALIN. [Suspect]
     Active Substance: PREGABALIN
     Dosage: 300 MILLIGRAM, ONCE A DAY
     Route: 065
  7. ESCITALOPRAM [Suspect]
     Active Substance: ESCITALOPRAM OXALATE
     Indication: ANXIETY
     Dosage: 15 MG, QD (TAKEN IN THE MORNING)
     Route: 065
  8. PREGABALIN. [Suspect]
     Active Substance: PREGABALIN
     Indication: PRODUCT USED FOR UNKNOWN INDICATION
     Dosage: UNK
     Route: 065
  9. ESCITALOPRAM [Suspect]
     Active Substance: ESCITALOPRAM OXALATE
     Dosage: 10 MILLIGRAM, ONCE A DAY (TAKEN IN THE MORNING)
     Route: 065
  10. HYDROXYZINE [Suspect]
     Active Substance: HYDROXYZINE HYDROCHLORIDE
     Indication: ANXIETY
     Dosage: 100 MILLIGRAM, ONCE A DAY
     Route: 065

REACTIONS (9)
  - Erectile dysfunction [Recovered/Resolved]
  - Anxiety [Recovered/Resolved]
  - Alcohol withdrawal syndrome [Recovered/Resolved]
  - Alcohol abuse [Recovered/Resolved]
  - Dizziness [Recovered/Resolved]
  - Gastric dilatation [Recovered/Resolved]
  - Abdominal pain upper [Recovered/Resolved]
  - Therapeutic product effect incomplete [Recovered/Resolved]
  - Anorgasmia [Recovered/Resolved]
